FAERS Safety Report 21525947 (Version 2)
Quarter: 2022Q4

REPORT INFORMATION
  Report Type: Spontaneous
  Country: US (occurrence: US)
  Receive Date: 20221031
  Receipt Date: 20221117
  Transmission Date: 20230113
  Serious: Yes (Hospitalization, Other)
  Sender: FDA-Public Use
  Company Number: US-BIOVITRUM-2022US12349

PATIENT
  Sex: Female

DRUGS (2)
  1. KINERET [Suspect]
     Active Substance: ANAKINRA
     Indication: Rheumatoid arthritis
     Dates: start: 202203
  2. KINERET [Suspect]
     Active Substance: ANAKINRA
     Dates: start: 20220330

REACTIONS (6)
  - Road traffic accident [Unknown]
  - Rheumatoid arthritis [Unknown]
  - Anxiety [Unknown]
  - Depression [Unknown]
  - Emotional disorder [Unknown]
  - Loss of personal independence in daily activities [Unknown]
